FAERS Safety Report 17764414 (Version 2)
Quarter: 2020Q3

REPORT INFORMATION
  Report Type: Spontaneous
  Country: US (occurrence: US)
  Receive Date: 20200511
  Receipt Date: 20200722
  Transmission Date: 20201102
  Serious: No
  Sender: FDA-Public Use
  Company Number: US-LUPIN PHARMACEUTICALS INC.-2020-02000

PATIENT
  Age: 65 Year
  Sex: Male
  Weight: 149.66 kg

DRUGS (1)
  1. GAVILYTE G [Suspect]
     Active Substance: POLYETHYLENE GLYCOL 3350\POTASSIUM CHLORIDE\SODIUM BICARBONATE\SODIUM CHLORIDE\SODIUM SULFATE ANHYDROUS
     Indication: CONSTIPATION
     Dosage: 1 DOSAGE FORM, SINGLE
     Route: 048
     Dates: start: 20200401, end: 20200401

REACTIONS (2)
  - Gait disturbance [Not Recovered/Not Resolved]
  - Off label use [Unknown]

NARRATIVE: CASE EVENT DATE: 202004
